FAERS Safety Report 7347000-X (Version None)
Quarter: 2011Q1

REPORT INFORMATION
  Report Type: 
  Country: None (occurrence: None)
  Receive Date: 20110311
  Receipt Date: 20110228
  Transmission Date: 20110831
  Serious: Yes (Other)
  Sender: FDA-Public Use
  Company Number: PHFR2011GB01610

PATIENT
  Sex: Male

DRUGS (1)
  1. CLOZARIL [Suspect]
     Indication: SCHIZOPHRENIA
     Route: 048
     Dates: start: 20110214, end: 20110228

REACTIONS (4)
  - DIZZINESS [None]
  - TONGUE ULCERATION [None]
  - TONGUE PARALYSIS [None]
  - HEADACHE [None]
